FAERS Safety Report 12712123 (Version 1)
Quarter: 2016Q3

REPORT INFORMATION
  Report Type: Spontaneous
  Country: US (occurrence: US)
  Receive Date: 20160902
  Receipt Date: 20160902
  Transmission Date: 20161109
  Serious: No
  Sender: FDA-Public Use
  Company Number: None

PATIENT
  Age: 40 Year
  Sex: Male

DRUGS (4)
  1. VENLAFAXINE ER [Concomitant]
     Active Substance: VENLAFAXINE HYDROCHLORIDE
  2. ZIPRASIDONE. [Suspect]
     Active Substance: ZIPRASIDONE
     Indication: AFFECTIVE DISORDER
     Route: 048
     Dates: start: 20160808
  3. KLONOPIN [Concomitant]
     Active Substance: CLONAZEPAM
  4. AMPHETAMINE [Concomitant]
     Active Substance: AMPHETAMINE

REACTIONS (4)
  - Somnolence [None]
  - Mental impairment [None]
  - Dysstasia [None]
  - Feeling abnormal [None]

NARRATIVE: CASE EVENT DATE: 20160808
